FAERS Safety Report 9284517 (Version 2)
Quarter: 2013Q2

REPORT INFORMATION
  Report Type: Report from Study
  Country: ES (occurrence: JP)
  Receive Date: 20130510
  Receipt Date: 20130605
  Transmission Date: 20140414
  Serious: Yes (Hospitalization)
  Sender: FDA-Public Use
  Company Number: JP-FRI-1000045081

PATIENT
  Age: 62 Year
  Sex: Male

DRUGS (7)
  1. ACLIDINIUM BROMIDE [Suspect]
     Indication: CHRONIC OBSTRUCTIVE PULMONARY DISEASE
     Dosage: 800 MCG
     Dates: start: 20121217, end: 20130413
  2. THEOPHYLLINE [Concomitant]
     Dosage: 200 MG
     Route: 048
     Dates: start: 20110406
  3. NEXIUM [Concomitant]
     Dosage: 20 MG
     Route: 048
     Dates: start: 20111129
  4. RASILEZ [Concomitant]
     Dosage: 150 MG
     Route: 048
     Dates: start: 20111007
  5. NIFESLOW [Concomitant]
     Dosage: 40 MG
     Route: 048
     Dates: start: 20111128
  6. REBAMIPIDE [Concomitant]
     Dosage: 300 MG
     Route: 048
     Dates: start: 20120602
  7. LANTUS [Concomitant]
     Dosage: 15 IU DAILY
     Route: 058

REACTIONS (1)
  - Pneumonia [Unknown]
